FAERS Safety Report 7422537-3 (Version None)
Quarter: 2011Q2

REPORT INFORMATION
  Report Type: 
  Country: None (occurrence: None)
  Receive Date: 20110419
  Receipt Date: 20110411
  Transmission Date: 20111010
  Serious: No
  Sender: FDA-Public Use
  Company Number: US-BIOGENIDEC-2011BI013778

PATIENT
  Age: 56 Year
  Sex: Male

DRUGS (3)
  1. AVONEX [Suspect]
     Route: 030
     Dates: start: 20071001
  2. AVONEX [Suspect]
     Indication: MULTIPLE SCLEROSIS
     Route: 030
     Dates: start: 20091205
  3. AVONEX [Suspect]
     Route: 030
     Dates: start: 20020614, end: 20071130

REACTIONS (4)
  - MULTIPLE SCLEROSIS [None]
  - INFLUENZA [None]
  - NASOPHARYNGITIS [None]
  - BALANCE DISORDER [None]
